FAERS Safety Report 8126115-2 (Version None)
Quarter: 2012Q1

REPORT INFORMATION
  Report Type: 
  Country: None (occurrence: None)
  Receive Date: 20120209
  Receipt Date: 20120131
  Transmission Date: 20120608
  Serious: Yes (Other)
  Sender: FDA-Public Use
  Company Number: PHHY2012BR009661

PATIENT
  Age: 72 Year
  Sex: Male

DRUGS (14)
  1. RASAGILINE [Concomitant]
  2. DOMPERIDONE [Concomitant]
     Dosage: 30 MG/DAILY
  3. BENSERAZIDE HYDROCHLORIDE W/LEVODOPA [Concomitant]
     Dosage: 100/25 MG
  4. ENTACAPONE [Concomitant]
     Dosage: 200 MG/DAY
  5. ENABLEX [Suspect]
     Dosage: 7.5 MG, UNK
     Route: 048
  6. LACTULOSE [Concomitant]
  7. RIVASTIGMINE [Concomitant]
     Dosage: 2 MG, TID
  8. AMANTADINE HCL [Concomitant]
     Dosage: 300 MG/DAY
  9. TOLCAPONE [Concomitant]
     Dosage: 300 MG/DAY
  10. FLUDROCORTISONE ACETATE [Concomitant]
     Indication: ORTHOSTATIC HYPOTENSION
     Dosage: 0.1 MG, BID
  11. QUETIAPINE [Suspect]
     Dosage: 50 MG, UNK
  12. CLONAZEPAM [Concomitant]
     Dosage: 0.5 MG, UNK
  13. RIVASTIGMINE [Concomitant]
     Dosage: 1.5 MG, BID
     Route: 048
  14. SERTRALINE HYDROCHLORIDE [Concomitant]
     Indication: DEPRESSION
     Dosage: 100 MG/DAY

REACTIONS (5)
  - QUALITY OF LIFE DECREASED [None]
  - CONFUSIONAL STATE [None]
  - COGNITIVE DISORDER [None]
  - ACTIVITIES OF DAILY LIVING IMPAIRED [None]
  - APATHY [None]
